FAERS Safety Report 8458509 (Version 2)
Quarter: 2013Q4

REPORT INFORMATION
  Report Type: Spontaneous
  Country: US (occurrence: US)
  Receive Date: 20120314
  Receipt Date: 20131022
  Transmission Date: 20140711
  Serious: Yes (Hospitalization)
  Sender: FDA-Public Use
  Company Number: US-GLAXOSMITHKLINE-A0889230A

PATIENT
  Sex: Male
  Weight: 80.9 kg

DRUGS (1)
  1. AVANDIA [Suspect]
     Indication: TYPE 2 DIABETES MELLITUS
     Dosage: 4MG PER DAY
     Route: 048
     Dates: start: 20090801, end: 20100810

REACTIONS (4)
  - Cardiac failure congestive [Unknown]
  - Cardiomyopathy [Unknown]
  - Angina pectoris [Unknown]
  - Myocardial ischaemia [Unknown]
